FAERS Safety Report 7416502-X (Version None)
Quarter: 2011Q2

REPORT INFORMATION
  Report Type: 
  Country: None (occurrence: None)
  Receive Date: 20110414
  Receipt Date: 20110401
  Transmission Date: 20111010
  Serious: Yes (Hospitalization)
  Sender: FDA-Public Use
  Company Number: FR-GENENTECH-314260

PATIENT
  Sex: Male
  Weight: 68 kg

DRUGS (8)
  1. ETOPOSIDE [Suspect]
     Indication: B-CELL LYMPHOMA
     Dosage: UNK
     Route: 042
     Dates: start: 20101129
  2. MABTHERA [Suspect]
     Indication: LYMPHOMA
     Dosage: 375 MG/M2, Q21D
     Route: 042
     Dates: start: 20101018
  3. MABTHERA [Suspect]
     Dosage: 375 MG/M2, Q21D
     Route: 042
     Dates: start: 20101108
  4. ONCOVIN [Suspect]
     Indication: B-CELL LYMPHOMA
     Dosage: 1.4 MG/M2, UNK
     Route: 042
     Dates: start: 20101018
  5. ADRIAMYCIN PFS [Suspect]
     Indication: B-CELL LYMPHOMA
     Dosage: 50 MG/M2, Q21D
     Route: 042
     Dates: start: 20101018
  6. PREDNISONE [Suspect]
     Indication: B-CELL LYMPHOMA
     Dosage: UNK
     Route: 048
     Dates: start: 20101018
  7. CYCLOPHOSPHAMIDE [Suspect]
     Indication: B-CELL LYMPHOMA
     Dosage: 750 MG/M2, Q21D
     Route: 042
     Dates: start: 20101018
  8. DEXRAZOXANE [Suspect]
     Indication: PRODUCT USED FOR UNKNOWN INDICATION
     Dosage: UNK
     Dates: start: 20101018

REACTIONS (2)
  - COGNITIVE DISORDER [None]
  - PROGRESSIVE MULTIFOCAL LEUKOENCEPHALOPATHY [None]
